FAERS Safety Report 24917321 (Version 1)
Quarter: 2025Q1

REPORT INFORMATION
  Report Type: Spontaneous
  Country: US (occurrence: None)
  Receive Date: 20250202
  Receipt Date: 20250202
  Transmission Date: 20250409
  Serious: Yes (Hospitalization)
  Sender: FDA-CTU
  Company Number: None

PATIENT
  Age: 27 Year
  Sex: Female
  Weight: 94.5 kg

DRUGS (4)
  1. ZEPBOUND [Suspect]
     Active Substance: TIRZEPATIDE
     Indication: Weight decreased
     Route: 058
     Dates: start: 20250127, end: 20250127
  2. ADDERALL [Concomitant]
     Active Substance: AMPHETAMINE ASPARTATE\AMPHETAMINE SULFATE\DEXTROAMPHETAMINE SACCHARATE\DEXTROAMPHETAMINE SULFATE
  3. TYLENOL [Concomitant]
     Active Substance: ACETAMINOPHEN
  4. MOTRIN [Concomitant]
     Active Substance: IBUPROFEN

REACTIONS (4)
  - Abdominal pain [None]
  - Nausea [None]
  - Vomiting [None]
  - Loss of personal independence in daily activities [None]
